FAERS Safety Report 4619228-0 (Version None)
Quarter: 2005Q2

REPORT INFORMATION
  Report Type: 
  Country: None (occurrence: None)
  Receive Date: 20050321
  Receipt Date: 20040922
  Transmission Date: 20051028
  Serious: Yes (Life-Threatening, Other)
  Sender: FDA-Public Use
  Company Number: 2004-09-1638

PATIENT
  Age: 49 Year
  Sex: Male
  Weight: 85.2762 kg

DRUGS (6)
  1. PEG-INTRON [Suspect]
     Indication: HEPATITIS C
     Dosage: 150-96 MCG QW SUBCUTANEOU
     Route: 058
     Dates: start: 20031001
  2. REBETOL [Suspect]
     Indication: HEPATITIS C
     Dosage: 800-600 MG QD ORAL
     Route: 048
     Dates: start: 20031001
  3. TRICOR [Concomitant]
  4. ALPRAZOLAM [Concomitant]
  5. GLIPIZIDE [Concomitant]
  6. METFORMIN [Concomitant]

REACTIONS (2)
  - AGGRESSION [None]
  - ANGER [None]
